FAERS Safety Report 12285059 (Version 2)
Quarter: 2016Q3

REPORT INFORMATION
  Report Type: Spontaneous
  Country: US (occurrence: US)
  Receive Date: 20160420
  Receipt Date: 20160707
  Transmission Date: 20161109
  Serious: No
  Sender: FDA-Public Use
  Company Number: US-ASTRAZENECA-2016SE39369

PATIENT
  Age: 31538 Day
  Sex: Female
  Weight: 68 kg

DRUGS (4)
  1. MEDICATION FOR BLOOD PRESSURE [Concomitant]
     Indication: HYPERTENSION
  2. PULMICORT FLEXHALER [Suspect]
     Active Substance: BUDESONIDE
     Indication: DYSPNOEA
     Dosage: 180MCG ONE PUFF TWICE DAILY
     Route: 055
     Dates: start: 20160325
  3. PULMICORT FLEXHALER [Suspect]
     Active Substance: BUDESONIDE
     Indication: ASTHMA
     Dosage: 180MCG ONE PUFF TWICE DAILY
     Route: 055
     Dates: start: 20160325
  4. MEDICATION FOR CHOLESTEROL [Concomitant]
     Indication: BLOOD CHOLESTEROL ABNORMAL

REACTIONS (4)
  - Product quality issue [Recovered/Resolved]
  - Pain [Recovered/Resolved]
  - Oropharyngeal pain [Recovered/Resolved]
  - Dyspnoea [Recovered/Resolved]

NARRATIVE: CASE EVENT DATE: 20160404
